FAERS Safety Report 9519736 (Version 2)
Quarter: 2014Q2

REPORT INFORMATION
  Report Type: Spontaneous
  Country: IT (occurrence: IT)
  Receive Date: 20130912
  Receipt Date: 20140428
  Transmission Date: 20141212
  Serious: Yes (Other)
  Sender: FDA-Public Use
  Company Number: IT-ACTAVIS-2013-16072

PATIENT
  Age: 52 Year
  Sex: Female

DRUGS (1)
  1. PARACETAMOL  (UNKNOWN) [Suspect]
     Indication: INTENTIONAL PRODUCT MISUSE
     Dosage: 16 DF, SINGLE
     Route: 048
     Dates: start: 20130813, end: 20130813

REACTIONS (6)
  - Self injurious behaviour [Recovered/Resolved]
  - Overdose [Recovered/Resolved]
  - Abdominal pain [Recovered/Resolved]
  - Vomiting [Recovered/Resolved]
  - Drug abuse [Recovered/Resolved]
  - Intentional product misuse [Recovered/Resolved]
